FAERS Safety Report 25446447 (Version 3)
Quarter: 2025Q4

REPORT INFORMATION
  Report Type: Spontaneous
  Country: US (occurrence: US)
  Receive Date: 20250617
  Receipt Date: 20251021
  Transmission Date: 20260117
  Serious: No
  Sender: BAYER HEALTHCARE PHARMACEUTICALS INC.
  Company Number: US-BAYER-2025A077215

PATIENT
  Age: 7 Year
  Sex: Male

DRUGS (7)
  1. KOVALTRY [Suspect]
     Active Substance: ANTIHEMOPHILIC FACTOR, HUMAN RECOMBINANT
     Indication: Haemorrhage
     Dosage: KOVALTRY 291/1111 UNITS, INFUSE 1386/2400 UNITS (+/- 10%) THREE TIMES A WEEK; 2400 UNITS (+/- 10%) F
     Route: 042
  2. KOVALTRY [Suspect]
     Active Substance: ANTIHEMOPHILIC FACTOR, HUMAN RECOMBINANT
     Indication: Haemorrhage
     Dosage: 1 EXTRA DOSE AS A PREVENTIVE
     Route: 042
     Dates: start: 20250603, end: 20250603
  3. KOVALTRY [Suspect]
     Active Substance: ANTIHEMOPHILIC FACTOR, HUMAN RECOMBINANT
     Indication: Haemorrhage
     Dosage: 2 DOSES OF 795 UNITS
     Route: 042
  4. KOVALTRY [Suspect]
     Active Substance: ANTIHEMOPHILIC FACTOR, HUMAN RECOMBINANT
     Indication: Haemorrhage
     Dosage: 1590 UNITS AS A PREVENTATIVE
     Route: 042
  5. KOVALTRY [Suspect]
     Active Substance: ANTIHEMOPHILIC FACTOR, HUMAN RECOMBINANT
     Indication: Haemorrhage
     Dosage: 795/1590 UN
     Route: 042
  6. KOVALTRY [Suspect]
     Active Substance: ANTIHEMOPHILIC FACTOR, HUMAN RECOMBINANT
     Indication: Haemorrhage
     Dosage: GIVEN A DOUBLE DOSE ~ 2850 UNITS
     Route: 042
     Dates: start: 20251009
  7. KOVALTRY [Suspect]
     Active Substance: ANTIHEMOPHILIC FACTOR, HUMAN RECOMBINANT
     Indication: Haemorrhage
     Dosage: DOUBLE DOSE ~ 2850 UNITS
     Route: 042
     Dates: start: 20251010

REACTIONS (4)
  - Contusion [None]
  - Central venous catheter removal [None]
  - Joint injury [None]
  - Joint swelling [Recovered/Resolved]

NARRATIVE: CASE EVENT DATE: 20250603
